FAERS Safety Report 9030457 (Version 2)
Quarter: 2013Q2

REPORT INFORMATION
  Report Type: Spontaneous
  Country: US (occurrence: US)
  Receive Date: 20130122
  Receipt Date: 20130522
  Transmission Date: 20140414
  Serious: Yes (Hospitalization)
  Sender: FDA-Public Use
  Company Number: US-PFIZER INC-2013023288

PATIENT
  Age: 53 Year
  Sex: Female
  Weight: 72.56 kg

DRUGS (6)
  1. NORVASC [Suspect]
     Indication: BLOOD PRESSURE ABNORMAL
     Dosage: 10 MG, 1X/DAY
     Dates: start: 1990
  2. NORVASC [Suspect]
     Indication: HYPERTENSION
  3. LORAZEPAM [Concomitant]
     Indication: ANXIETY
     Dosage: 2 MG, 3X/DAY
  4. LORAZEPAM [Concomitant]
     Indication: DEPRESSION
  5. PLAVIX [Concomitant]
     Indication: CARDIAC OPERATION
     Dosage: 75 MG, 1X/DAY
     Route: 048
  6. CRESTOR [Concomitant]
     Indication: BLOOD CHOLESTEROL INCREASED
     Dosage: 20 MG, 1X/DAY
     Route: 048

REACTIONS (1)
  - Coronary artery disease [Unknown]
